FAERS Safety Report 9266333 (Version 1)
Quarter: 2013Q2

REPORT INFORMATION
  Report Type: Report from Study
  Country: US (occurrence: US)
  Receive Date: 20130502
  Receipt Date: 20130502
  Transmission Date: 20140414
  Serious: Yes (Other)
  Sender: FDA-Public Use
  Company Number: US-ACCORD-017421

PATIENT
  Sex: 0

DRUGS (6)
  1. ETOPOSIDE [Suspect]
     Indication: ATYPICAL TERATOID/RHABDOID TUMOUR OF CNS
     Dosage: 50 MG/M2 DAY
     Route: 048
  2. GRANULOCYTE COLONY STIMULATING FACT [Concomitant]
     Dosage: 5 MCG/KG/DOSE DURING CSI
  3. CYTARABINE [Suspect]
     Indication: ATYPICAL TERATOID/RHABDOID TUMOUR OF CNS
     Dosage: RECEIVED TWO DOSES
     Route: 037
  4. CISPLATIN [Suspect]
     Indication: ATYPICAL TERATOID/RHABDOID TUMOUR OF CNS
  5. VINCRISTINE [Suspect]
     Indication: ATYPICAL TERATOID/RHABDOID TUMOUR OF CNS
     Dosage: 1.5 MG/M2/DOSE WEEKLY
  6. CYCLOPHOSPHAMIDE [Suspect]
     Indication: ATYPICAL TERATOID/RHABDOID TUMOUR OF CNS
     Dosage: TWO CYCLES AT DOSE OF  1 G/M2 ON DAYS 1 AND 2 OF CSI
     Route: 042

REACTIONS (4)
  - Thrombocytopenia [Unknown]
  - Anaemia [Unknown]
  - H1N1 influenza [Unknown]
  - Off label use [Unknown]
